FAERS Safety Report 9556268 (Version 1)
Quarter: 2013Q3

REPORT INFORMATION
  Report Type: Report from Study
  Country: TW (occurrence: TW)
  Receive Date: 20130926
  Receipt Date: 20130926
  Transmission Date: 20140515
  Serious: Yes (Hospitalization)
  Sender: FDA-Public Use
  Company Number: TW-SANOFI-AVENTIS-2013SA092865

PATIENT
  Age: 60 Year
  Sex: Male

DRUGS (9)
  1. PLAVIX [Suspect]
     Indication: ACUTE CORONARY SYNDROME
     Route: 048
     Dates: start: 20130524
  2. ASPIRIN [Suspect]
     Indication: ACUTE CORONARY SYNDROME
     Route: 048
     Dates: start: 20130525
  3. ACETYLSALICYLIC ACID [Concomitant]
     Dosage: STRENGTH: 100 MG, FREQUENCY: QO
     Route: 048
  4. PLAVIX [Concomitant]
     Dosage: FREQUENCY: QO, STRENGTH: 75 MG
     Route: 048
  5. CRESTOR [Concomitant]
     Dosage: FREQUENCY: QO, STRENGTH: 10 MG
     Route: 048
  6. AMARYL M [Concomitant]
     Dosage: STRENGTH: 2/500 MG
     Route: 048
  7. DILATREND [Concomitant]
     Dosage: STRENGTH: 6.25 MG
     Route: 048
  8. JANUVIA [Concomitant]
     Dosage: STRENGTH: 100 MG, FREQUENCY: BID/QD
  9. SIGMART [Concomitant]
     Dosage: STRENGTH: 5 MG
     Route: 048

REACTIONS (1)
  - Coronary artery disease [Recovered/Resolved]
